FAERS Safety Report 6236525-6 (Version None)
Quarter: 2009Q2

REPORT INFORMATION
  Report Type: 
  Country: None (occurrence: None)
  Receive Date: 20090619
  Receipt Date: 20090612
  Transmission Date: 20091009
  Serious: Yes (Other)
  Sender: FDA-Public Use
  Company Number: B0564233A

PATIENT
  Sex: Male

DRUGS (4)
  1. PAXIL [Suspect]
     Indication: DEPRESSION
     Route: 048
     Dates: start: 20060404, end: 20070807
  2. MYSLEE [Suspect]
     Indication: INSOMNIA
     Dosage: 20MG PER DAY
     Route: 048
  3. FLUVOXAMINE MALEATE [Suspect]
     Indication: DEPRESSION
     Dosage: 150MG PER DAY
     Route: 048
     Dates: start: 20060404, end: 20070807
  4. DEPAS [Suspect]
     Indication: INSOMNIA
     Dosage: 3MG PER DAY
     Route: 048

REACTIONS (5)
  - CHOLECYSTITIS [None]
  - CHRONIC HEPATITIS [None]
  - HEPATIC STEATOSIS [None]
  - PIGMENTATION DISORDER [None]
  - VISUAL IMPAIRMENT [None]
